FAERS Safety Report 25445138 (Version 1)
Quarter: 2025Q2

REPORT INFORMATION
  Report Type: Spontaneous
  Country: NL (occurrence: None)
  Receive Date: 20250616
  Receipt Date: 20250616
  Transmission Date: 20250716
  Serious: Yes (Disabling)
  Sender: FDA-CTU
  Company Number: None

PATIENT
  Age: 68 Year
  Sex: Female

DRUGS (2)
  1. PROZAC [Suspect]
     Active Substance: FLUOXETINE HYDROCHLORIDE
     Indication: Grief reaction
  2. LEVOTHYROXINE [Concomitant]
     Active Substance: LEVOTHYROXINE

REACTIONS (9)
  - Illness [None]
  - Skin burning sensation [None]
  - Bladder disorder [None]
  - Eye disorder [None]
  - Depression [None]
  - Anxiety [None]
  - Loss of employment [None]
  - Drug withdrawal syndrome [None]
  - Brain injury [None]

NARRATIVE: CASE EVENT DATE: 20200629
